FAERS Safety Report 12876360 (Version 1)
Quarter: 2016Q4

REPORT INFORMATION
  Report Type: Spontaneous
  Country: US (occurrence: US)
  Receive Date: 20161024
  Receipt Date: 20161024
  Transmission Date: 20170207
  Serious: No
  Sender: FDA-Public Use
  Company Number: US-BAYER-2016-199377

PATIENT
  Age: 80 Year
  Sex: Female
  Weight: 39.46 kg

DRUGS (6)
  1. CHLORDIAZEPOXIDE HYDROCHLORIDE. [Concomitant]
     Active Substance: CHLORDIAZEPOXIDE HYDROCHLORIDE
     Dosage: UNK
  2. MIRALAX [Suspect]
     Active Substance: POLYETHYLENE GLYCOL 3350
     Indication: COLONOSCOPY
     Dosage: UNK UNK, QD
     Route: 048
  3. PEPCID [Concomitant]
     Active Substance: FAMOTIDINE
     Dosage: 2-3 DF, QD BEFORE MEALS
  4. ALKA-SELTZER [ACETYLSALICYLIC ACID] [Concomitant]
     Dosage: UNK UNK, PRN
  5. MILK OF MAGNESIA ORIGINAL [Suspect]
     Active Substance: MAGNESIUM HYDROXIDE
     Indication: GASTROINTESTINAL DISORDER
     Dosage: 4 DF, PRN
     Route: 048
  6. VICODIN [Concomitant]
     Active Substance: ACETAMINOPHEN\HYDROCODONE BITARTRATE
     Indication: HEADACHE
     Dosage: UNK UNK, PRN

REACTIONS (7)
  - Drug ineffective [Unknown]
  - Product use issue [Unknown]
  - Dry mouth [Recovered/Resolved]
  - Product use issue [None]
  - Product use issue [Unknown]
  - Malaise [Recovered/Resolved]
  - Circumstance or information capable of leading to medication error [None]

NARRATIVE: CASE EVENT DATE: 2003
